FAERS Safety Report 4880716-3 (Version None)
Quarter: 2006Q1

REPORT INFORMATION
  Report Type: 
  Country: None (occurrence: None)
  Receive Date: 20060113
  Receipt Date: 20051220
  Transmission Date: 20060701
  Serious: Yes (Other)
  Sender: FDA-Public Use
  Company Number: US-MERCK-0512USA03332

PATIENT
  Age: 75 Year
  Sex: Male
  Weight: 102 kg

DRUGS (3)
  1. VIOXX [Suspect]
     Indication: PAIN
     Route: 048
     Dates: start: 20001001, end: 20040701
  2. VIOXX [Suspect]
     Route: 048
     Dates: start: 20001001, end: 20040701
  3. VIOXX [Suspect]
     Route: 048
     Dates: start: 20001001, end: 20040701

REACTIONS (2)
  - CEREBROVASCULAR ACCIDENT [None]
  - PNEUMONIA [None]
